FAERS Safety Report 9099418 (Version 1)
Quarter: 2013Q1

REPORT INFORMATION
  Report Type: Report from Study
  Country: JP (occurrence: JP)
  Receive Date: 20130214
  Receipt Date: 20130214
  Transmission Date: 20140127
  Serious: Yes (Hospitalization)
  Sender: FDA-Public Use
  Company Number: JP-ASTRAZENECA-2013SE09301

PATIENT
  Age: 26682 Day
  Sex: Female
  Weight: 64 kg

DRUGS (9)
  1. CRESTOR [Suspect]
     Dosage: 5 MG
     Route: 048
     Dates: start: 20120807
  2. OMEPRAL [Concomitant]
     Indication: GASTROOESOPHAGEAL REFLUX DISEASE
     Route: 048
     Dates: start: 20060411, end: 20121105
  3. NEXIUM [Concomitant]
     Indication: GASTROOESOPHAGEAL REFLUX DISEASE
     Route: 048
     Dates: start: 20121106
  4. GLIMICRON [Concomitant]
     Indication: TYPE 2 DIABETES MELLITUS
     Route: 048
  5. BASEN OD [Concomitant]
     Indication: TYPE 2 DIABETES MELLITUS
     Route: 048
  6. ALDACTONE A [Concomitant]
     Indication: HYPERTENSION
     Route: 048
  7. MAGMITT [Concomitant]
     Indication: CONSTIPATION
     Route: 048
  8. MAINTATE [Concomitant]
     Indication: HYPERTENSION
     Route: 048
  9. NORVASC OD [Concomitant]
     Route: 048

REACTIONS (1)
  - Cerebral infarction [Not Recovered/Not Resolved]
